FAERS Safety Report 23522857 (Version 1)
Quarter: 2024Q1

REPORT INFORMATION
  Report Type: Report from Study
  Country: US (occurrence: US)
  Receive Date: 20240214
  Receipt Date: 20240214
  Transmission Date: 20240410
  Serious: Yes (Hospitalization)
  Sender: FDA-Public Use
  Company Number: US-EXELIXIS-CABO-24073758

PATIENT
  Sex: Female
  Weight: 72.562 kg

DRUGS (9)
  1. COMETRIQ [Suspect]
     Active Substance: CABOZANTINIB S-MALATE
     Indication: Thyroid cancer
     Dosage: 140 MG
     Dates: start: 201308
  2. COMETRIQ [Suspect]
     Active Substance: CABOZANTINIB S-MALATE
     Indication: Illness
     Dosage: 100 MG, QD
     Route: 048
     Dates: start: 20240203
  3. CALCITRIOL [Concomitant]
     Active Substance: CALCITRIOL
  4. VITAMIN D3 [Concomitant]
     Active Substance: CHOLECALCIFEROL
  5. PIOGLITAZONE [Concomitant]
     Active Substance: PIOGLITAZONE
  6. METFORMIN HYDROCHLORIDE [Concomitant]
     Active Substance: METFORMIN HYDROCHLORIDE
  7. DILTIAZEM HYDROCHLORIDE [Concomitant]
     Active Substance: DILTIAZEM HYDROCHLORIDE
  8. OMEPRAZOLE [Concomitant]
     Active Substance: OMEPRAZOLE
  9. LEVOTHYROXINE SODIUM [Concomitant]
     Active Substance: LEVOTHYROXINE SODIUM

REACTIONS (8)
  - Electrolyte imbalance [Unknown]
  - Blood magnesium decreased [Unknown]
  - Haemorrhage subcutaneous [Unknown]
  - Hair colour changes [Unknown]
  - Tachycardia [Unknown]
  - Stress [Unknown]
  - Blood glucose abnormal [Unknown]
  - Dizziness [Unknown]
